FAERS Safety Report 8608266-9 (Version None)
Quarter: 2012Q3

REPORT INFORMATION
  Report Type: 
  Country: None (occurrence: None)
  Receive Date: 20120821
  Receipt Date: 20120812
  Transmission Date: 20120928
  Serious: Yes (Other)
  Sender: FDA-Public Use
  Company Number: GB-SANOFI-AVENTIS-2012SA058290

PATIENT
  Age: 54 Year
  Sex: Female

DRUGS (1)
  1. LANTUS [Suspect]
     Indication: TYPE 2 DIABETES MELLITUS
     Dosage: CARTRIDGE DOSE:26 UNIT(S)
     Route: 058
     Dates: start: 20120701

REACTIONS (6)
  - PAIN [None]
  - HAEMORRHAGE [None]
  - ERYTHEMA [None]
  - WEIGHT INCREASED [None]
  - HYPERGLYCAEMIA [None]
  - OEDEMA PERIPHERAL [None]
